FAERS Safety Report 7932792-9 (Version None)
Quarter: 2011Q4

REPORT INFORMATION
  Report Type: 
  Country: None (occurrence: None)
  Receive Date: 20111122
  Receipt Date: 20111111
  Transmission Date: 20120403
  Serious: Yes (Hospitalization)
  Sender: FDA-Public Use
  Company Number: MY-BRISTOL-MYERS SQUIBB COMPANY-16226995

PATIENT
  Age: 30 Year
  Sex: Male

DRUGS (5)
  1. BENZHEXOL [Concomitant]
     Dates: start: 20060103, end: 20111101
  2. RISPERIDONE [Concomitant]
     Dates: start: 20060103, end: 20111101
  3. ARIPIPRAZOLE [Suspect]
     Indication: SCHIZOPHRENIA
     Route: 030
  4. ABILIFY [Suspect]
     Indication: SCHIZOPHRENIA
     Route: 048
     Dates: start: 20111024, end: 20111101
  5. BLINDED: PLACEBO [Suspect]
     Indication: SCHIZOPHRENIA

REACTIONS (1)
  - PSYCHIATRIC SYMPTOM [None]
